FAERS Safety Report 17928115 (Version 2)
Quarter: 2020Q3

REPORT INFORMATION
  Report Type: Spontaneous
  Country: US (occurrence: US)
  Receive Date: 20200622
  Receipt Date: 20200720
  Transmission Date: 20201103
  Serious: No
  Sender: FDA-Public Use
  Company Number: US-ASTRAZENECA-2020SE77913

PATIENT
  Sex: Female
  Weight: 47.6 kg

DRUGS (2)
  1. INSULIN PUMP [Concomitant]
     Active Substance: DEVICE\INSULIN NOS
     Indication: TYPE 1 DIABETES MELLITUS
  2. SYMLIN [Suspect]
     Active Substance: PRAMLINTIDE ACETATE
     Indication: TYPE 1 DIABETES MELLITUS
     Route: 058

REACTIONS (3)
  - Product dose omission issue [Not Recovered/Not Resolved]
  - Drug delivery system issue [Unknown]
  - Blood glucose increased [Unknown]
